FAERS Safety Report 5315088-3 (Version None)
Quarter: 2007Q2

REPORT INFORMATION
  Report Type: 
  Country: None (occurrence: None)
  Receive Date: 20070502
  Receipt Date: 20070420
  Transmission Date: 20071010
  Serious: Yes (Hospitalization)
  Sender: FDA-Public Use
  Company Number: GB-PFIZER INC-2006097147

PATIENT
  Sex: Female
  Weight: 93.5 kg

DRUGS (4)
  1. SU-011,248 [Suspect]
     Indication: RENAL CELL CARCINOMA STAGE UNSPECIFIED
     Route: 048
  2. ATENOLOL [Concomitant]
     Dosage: FREQ:UNKNOWN
     Route: 048
  3. PARACETAMOL [Concomitant]
     Dosage: FREQ:UNKNOWN
     Route: 048
     Dates: start: 20060201
  4. DOMPERIDONE [Concomitant]
     Route: 048

REACTIONS (3)
  - BLINDNESS [None]
  - GASTROOESOPHAGEAL REFLUX DISEASE [None]
  - GRAND MAL CONVULSION [None]
